FAERS Safety Report 12427791 (Version 1)
Quarter: 2016Q2

REPORT INFORMATION
  Report Type: Spontaneous
  Country: US (occurrence: None)
  Receive Date: 20160601
  Receipt Date: 20160601
  Transmission Date: 20160815
  Serious: Yes (Other)
  Sender: FDA-Public Use
  Company Number: None

PATIENT
  Age: 37 Year
  Sex: Female
  Weight: 127.01 kg

DRUGS (3)
  1. ZYRTEC 24HR FORMULA [Concomitant]
  2. DICLOFENAC, SUBSTITUTED FOR VOLT, 75 MG [Suspect]
     Active Substance: DICLOFENAC
     Indication: PLANTAR FASCIITIS
     Route: 048
     Dates: start: 20160526, end: 20160527
  3. BIRTH CONTROL [Concomitant]
     Active Substance: UNSPECIFIED INGREDIENT

REACTIONS (8)
  - Nausea [None]
  - Haematemesis [None]
  - Vomiting [None]
  - Malaise [None]
  - Product label issue [None]
  - Asthenia [None]
  - Dizziness [None]
  - Alcohol use [None]

NARRATIVE: CASE EVENT DATE: 20160527
